FAERS Safety Report 9551656 (Version 1)
Quarter: 2013Q3

REPORT INFORMATION
  Report Type: Spontaneous
  Country: US (occurrence: None)
  Receive Date: 20130923
  Receipt Date: 20130923
  Transmission Date: 20140515
  Serious: No
  Sender: FDA-Public Use
  Company Number: None

PATIENT
  Age: 61 Year
  Sex: 0

DRUGS (1)
  1. REMICADE 100 MG VIAL [Suspect]

REACTIONS (6)
  - Hypersensitivity [None]
  - Cough [None]
  - Muscle spasms [None]
  - Anxiety [None]
  - Dyspnoea [None]
  - Infusion related reaction [None]
